FAERS Safety Report 9768359 (Version 1)
Quarter: 2013Q4

REPORT INFORMATION
  Report Type: Spontaneous
  Country: US (occurrence: US)
  Receive Date: 20131217
  Receipt Date: 20131217
  Transmission Date: 20140711
  Serious: No
  Sender: FDA-Public Use
  Company Number: US-009507513-1310USA015181

PATIENT
  Sex: Female

DRUGS (1)
  1. NUVARING [Suspect]
     Indication: CONTRACEPTION
     Dosage: UNK, 3 WEEKS IN, 1 WEEK OUT
     Route: 067
     Dates: start: 2012

REACTIONS (3)
  - Discomfort [Unknown]
  - Device breakage [Unknown]
  - Sinusitis [Unknown]
